FAERS Safety Report 8161984-1 (Version None)
Quarter: 2012Q1

REPORT INFORMATION
  Report Type: 
  Country: None (occurrence: None)
  Receive Date: 20120224
  Receipt Date: 20120220
  Transmission Date: 20120608
  Serious: No
  Sender: FDA-Public Use
  Company Number: US-BAYER-2012-017521

PATIENT
  Sex: Female

DRUGS (4)
  1. FOLIC ACID [Concomitant]
  2. ULTRAVIST 150 [Suspect]
     Indication: DIAGNOSTIC PROCEDURE
     Dosage: 80 ML, ONCE
     Route: 042
     Dates: start: 20120220
  3. PROPRANOLOL [Concomitant]
  4. VOLUMEN [Concomitant]

REACTIONS (5)
  - COUGH [None]
  - THROAT IRRITATION [None]
  - CHEST DISCOMFORT [None]
  - LACRIMATION INCREASED [None]
  - SNEEZING [None]
